FAERS Safety Report 9240101 (Version 2)
Quarter: 2013Q4

REPORT INFORMATION
  Report Type: Spontaneous
  Country: GB (occurrence: None)
  Receive Date: 20130417
  Receipt Date: 20131016
  Transmission Date: 20140711
  Serious: Yes (Other)
  Sender: FDA-Public Use
  Company Number: AUR-APL-2013-03028

PATIENT
  Age: 57 Year
  Sex: Male
  Weight: 70 kg

DRUGS (7)
  1. RIBAVIRIN (RIBAVIRIN) [Suspect]
     Indication: HEPATITIS C
     Dates: start: 20121127
  2. INCIVO (TELAPREVIR) [Suspect]
     Indication: HEPATITIS C
     Dosage: 2250 MG (750 MG,3 IN 1 D),ORAL
     Route: 048
     Dates: start: 20121112
  3. METHADONE (METHADONE) [Concomitant]
  4. OMEPRAZOLE (OMEPRAZOLE) [Concomitant]
  5. PEGINTERFERON ALFA-2A (PEGINTERFERON ALFA-2A) [Concomitant]
  6. PROPANOL (PROPRANOLOL) [Concomitant]
  7. VITAMIN B SUBSTANCES (THIAMINE HYDROCHLORIDE) [Concomitant]

REACTIONS (17)
  - Influenza like illness [None]
  - Pruritus [None]
  - Dry skin [None]
  - Decreased appetite [None]
  - Fatigue [None]
  - Pain [None]
  - Nausea [None]
  - Vomiting [None]
  - Haemoglobin decreased [None]
  - Mouth ulceration [None]
  - Depression [None]
  - Dyspnoea [None]
  - Activities of daily living impaired [None]
  - Rash [None]
  - Amnesia [None]
  - Haemorrhoids [None]
  - Anaemia [None]
